FAERS Safety Report 5501292-8 (Version None)
Quarter: 2007Q4

REPORT INFORMATION
  Report Type: 
  Country: None (occurrence: None)
  Receive Date: 20071029
  Receipt Date: 20071019
  Transmission Date: 20080405
  Serious: Yes (Hospitalization, Other)
  Sender: FDA-Public Use
  Company Number: NO-PFIZER INC-2007088913

PATIENT
  Sex: Male

DRUGS (2)
  1. CELEBRA [Suspect]
     Route: 048
     Dates: start: 20020401, end: 20050501
  2. VIOXX [Suspect]
     Route: 048
     Dates: start: 20021001, end: 20040101

REACTIONS (12)
  - ANGINA PECTORIS [None]
  - BALANCE DISORDER [None]
  - CARDIAC FAILURE [None]
  - DISTURBANCE IN ATTENTION [None]
  - DYSPNOEA [None]
  - ENCEPHALOPATHY [None]
  - EYE PAIN [None]
  - HYPERTENSION [None]
  - MEMORY IMPAIRMENT [None]
  - MUSCULAR WEAKNESS [None]
  - MYOCARDIAL INFARCTION [None]
  - TREMOR [None]
